FAERS Safety Report 24045294 (Version 2)
Quarter: 2024Q3

REPORT INFORMATION
  Report Type: Report from Study
  Country: US (occurrence: US)
  Receive Date: 20240703
  Receipt Date: 20240708
  Transmission Date: 20241016
  Serious: Yes (Other)
  Sender: ABBVIE
  Company Number: US-ABBVIE-5821814

PATIENT
  Sex: Female

DRUGS (1)
  1. RINVOQ [Suspect]
     Active Substance: UPADACITINIB
     Indication: Rheumatoid arthritis
     Dosage: FORM STRENGTH: 15 MG
     Route: 048
     Dates: start: 2022

REACTIONS (8)
  - Blood loss anaemia [Unknown]
  - Rib fracture [Unknown]
  - Spinal compression fracture [Unknown]
  - Arthritis [Not Recovered/Not Resolved]
  - Cognitive disorder [Unknown]
  - Bone pain [Not Recovered/Not Resolved]
  - Compression fracture [Unknown]
  - Osteoporosis [Not Recovered/Not Resolved]

NARRATIVE: CASE EVENT DATE: 20230101
